FAERS Safety Report 18517870 (Version 1)
Quarter: 2020Q4

REPORT INFORMATION
  Report Type: Spontaneous
  Country: GB (occurrence: GB)
  Receive Date: 20201118
  Receipt Date: 20201118
  Transmission Date: 20210114
  Serious: Yes (Other)
  Sender: FDA-Public Use
  Company Number: GB-ASTRAZENECA-2020SF47722

PATIENT
  Age: 22 Year
  Sex: Male

DRUGS (3)
  1. SEROQUEL [Suspect]
     Active Substance: QUETIAPINE FUMARATE
     Indication: PRODUCT USED FOR UNKNOWN INDICATION
     Route: 048
     Dates: start: 2011
  2. PROCYCLIDINE [Concomitant]
     Active Substance: PROCYCLIDINE
     Indication: TARDIVE DYSKINESIA
  3. SEROQUEL [Suspect]
     Active Substance: QUETIAPINE FUMARATE
     Indication: PRODUCT USED FOR UNKNOWN INDICATION
     Route: 048

REACTIONS (23)
  - Fear of death [Recovered/Resolved]
  - Movement disorder [Unknown]
  - Toxicity to various agents [Unknown]
  - Psychotic disorder [Unknown]
  - Malaise [Unknown]
  - Dizziness [Unknown]
  - Overdose [Unknown]
  - Brain injury [Unknown]
  - Headache [Unknown]
  - Pain [Unknown]
  - Metabolic syndrome [Unknown]
  - Musculoskeletal stiffness [Unknown]
  - Dyspnoea [Recovered/Resolved]
  - Fatigue [Unknown]
  - Tremor [Unknown]
  - Facial pain [Unknown]
  - Tachycardia [Unknown]
  - Sleep apnoea syndrome [Unknown]
  - Palpitations [Unknown]
  - Tardive dyskinesia [Unknown]
  - Muscle tightness [Unknown]
  - Anxiety [Recovered/Resolved]
  - Life expectancy shortened [Unknown]

NARRATIVE: CASE EVENT DATE: 2011
